FAERS Safety Report 7623106-2 (Version None)
Quarter: 2011Q3

REPORT INFORMATION
  Report Type: 
  Country: None (occurrence: None)
  Receive Date: 20110720
  Receipt Date: 20110715
  Transmission Date: 20111222
  Serious: No
  Sender: FDA-Public Use
  Company Number: US-B.I. PHARMACEUTICALS,INC./RIDGEFIELD-2011-BP-15035BP

PATIENT
  Age: 56 Year
  Sex: Female
  Weight: 87.09 kg

DRUGS (2)
  1. MULTAQ [Concomitant]
     Indication: ATRIAL FIBRILLATION
     Dosage: 400 MG
     Route: 048
     Dates: start: 20110605, end: 20110608
  2. PRADAXA [Suspect]
     Indication: ATRIAL FIBRILLATION
     Dosage: 300 MG
     Route: 048
     Dates: start: 20110323

REACTIONS (3)
  - PROTHROMBIN TIME [None]
  - INTERNATIONAL NORMALISED RATIO [None]
  - ACTIVATED PARTIAL THROMBOPLASTIN TIME PROLONGED [None]
